FAERS Safety Report 5081886-7 (Version None)
Quarter: 2006Q3

REPORT INFORMATION
  Report Type: 
  Country: None (occurrence: None)
  Receive Date: 20060816
  Receipt Date: 20060810
  Transmission Date: 20061208
  Serious: Yes (Disabling)
  Sender: FDA-Public Use
  Company Number: US-MERCK-0608USA02573

PATIENT
  Age: 56 Year
  Sex: Female

DRUGS (2)
  1. FOSAMAX [Suspect]
     Indication: OSTEOPOROSIS
     Route: 048
     Dates: start: 20040101, end: 20060601
  2. MOTRIN [Concomitant]
     Route: 065

REACTIONS (2)
  - DYSSTASIA [None]
  - MUSCULAR WEAKNESS [None]
